FAERS Safety Report 10306519 (Version 2)
Quarter: 2014Q3

REPORT INFORMATION
  Report Type: Spontaneous
  Country: DE (occurrence: DE)
  Receive Date: 20140715
  Receipt Date: 20140911
  Transmission Date: 20150326
  Serious: Yes (Hospitalization)
  Sender: FDA-Public Use
  Company Number: DE-BAYER-2014-105325

PATIENT
  Age: 76 Year
  Sex: Male

DRUGS (1)
  1. ADEMPAS [Suspect]
     Active Substance: RIOCIGUAT
     Indication: PULMONARY HYPERTENSION
     Dosage: 1.5 MG, TID
     Dates: start: 201401, end: 201405

REACTIONS (5)
  - Syncope [None]
  - Dizziness [None]
  - Fall [None]
  - Haematoma [None]
  - Loss of consciousness [None]

NARRATIVE: CASE EVENT DATE: 20140520
